FAERS Safety Report 8972485 (Version 1)
Quarter: 2012Q4

REPORT INFORMATION
  Report Type: Spontaneous
  Country: US (occurrence: None)
  Receive Date: 20121217
  Receipt Date: 20121217
  Transmission Date: 20130627
  Serious: Yes (Hospitalization, Other)
  Sender: FDA-Public Use
  Company Number: None

PATIENT
  Age: 77 Year
  Sex: Female
  Weight: 48.99 kg

DRUGS (1)
  1. LIMBREL [Suspect]
     Indication: OSTEOARTHRITIS
     Route: 048
     Dates: start: 20121109, end: 20121209

REACTIONS (3)
  - Urticaria [None]
  - Middle insomnia [None]
  - Throat tightness [None]
